FAERS Safety Report 5261173-4 (Version None)
Quarter: 2007Q1

REPORT INFORMATION
  Report Type: 
  Country: None (occurrence: None)
  Receive Date: 20070309
  Receipt Date: 20070227
  Transmission Date: 20070707
  Serious: Yes (Hospitalization)
  Sender: FDA-Public Use
  Company Number: JP-PFIZER INC-2007006156

PATIENT
  Sex: Male

DRUGS (6)
  1. DETRUSITOL SR [Suspect]
     Indication: POLLAKIURIA
     Route: 048
     Dates: start: 20061212, end: 20070103
  2. LASIX [Concomitant]
     Route: 048
  3. BLOPRESS [Concomitant]
     Route: 048
  4. TOWARAT [Concomitant]
     Route: 048
  5. AROTINOLOL HYDROCHLORIDE [Concomitant]
     Route: 048
  6. BUP-4 [Concomitant]
     Route: 048
     Dates: start: 20020416, end: 20061212

REACTIONS (1)
  - NEPHROTIC SYNDROME [None]
